FAERS Safety Report 8052354 (Version 7)
Quarter: 2017Q3

REPORT INFORMATION
  Report Type: Spontaneous
  Country: JP (occurrence: JP)
  Receive Date: 20110725
  Receipt Date: 20170907
  Transmission Date: 20171128
  Serious: Yes (Death, Other)
  Sender: FDA-Public Use
  Company Number: PHHY2011JP65548

PATIENT
  Age: 7 Month
  Sex: Female

DRUGS (6)
  1. METHOTREXATE. [Suspect]
     Active Substance: METHOTREXATE
     Indication: ACUTE MYELOID LEUKAEMIA
     Dosage: 3 MG, UNK
     Route: 039
  2. CYTOSINE ARABINOSIDE [Suspect]
     Active Substance: CYTARABINE
     Indication: ACUTE MYELOID LEUKAEMIA
     Dosage: 2000 MG/M2, UNK
     Route: 065
  3. HYDROCORTISONE. [Suspect]
     Active Substance: HYDROCORTISONE
     Indication: ACUTE MYELOID LEUKAEMIA
     Dosage: 10 MG, UNK
     Route: 065
  4. SANDIMMUN [Suspect]
     Active Substance: CYCLOSPORINE
     Indication: PRODUCT USED FOR UNKNOWN INDICATION
     Route: 042
  5. ETOPOSIDE. [Suspect]
     Active Substance: ETOPOSIDE
     Indication: ACUTE MYELOID LEUKAEMIA
     Dosage: 150 MG/M2, UNK
     Route: 065
  6. MITOXANTRONE [Suspect]
     Active Substance: MITOXANTRONE HYDROCHLORIDE
     Indication: ACUTE MYELOID LEUKAEMIA
     Dosage: 5 UG/M2, UNK
     Route: 065

REACTIONS (17)
  - Dyspnoea [Fatal]
  - Lung disorder [Unknown]
  - Abdominal distension [Unknown]
  - Blood lactate dehydrogenase abnormal [Unknown]
  - Respiratory failure [Fatal]
  - Disseminated intravascular coagulation [Unknown]
  - Acute respiratory distress syndrome [Unknown]
  - Febrile neutropenia [Unknown]
  - Ileus [Unknown]
  - Hyperbilirubinaemia [Unknown]
  - Jaundice [Unknown]
  - Lymphohistiocytosis [Unknown]
  - Pulmonary haemorrhage [Unknown]
  - Shock symptom [Unknown]
  - Pyrexia [Unknown]
  - Bile output abnormal [Unknown]
  - Gastrointestinal haemorrhage [Unknown]
